FAERS Safety Report 10183643 (Version 1)
Quarter: 2014Q2

REPORT INFORMATION
  Report Type: Spontaneous
  Country: IN (occurrence: IN)
  Receive Date: 20140520
  Receipt Date: 20140520
  Transmission Date: 20141212
  Serious: Yes (Other)
  Sender: FDA-Public Use
  Company Number: IN-PFIZER INC-2014133967

PATIENT
  Age: 3 Year
  Sex: Female
  Weight: 12 kg

DRUGS (1)
  1. PHENYTOIN [Suspect]
     Dosage: 150 MG, UNK

REACTIONS (3)
  - Extravasation [Unknown]
  - Compartment syndrome [Recovering/Resolving]
  - Extremity necrosis [Recovering/Resolving]
